FAERS Safety Report 6535161-1 (Version None)
Quarter: 2010Q1

REPORT INFORMATION
  Report Type: 
  Country: None (occurrence: None)
  Receive Date: 20100113
  Receipt Date: 20100107
  Transmission Date: 20100710
  Serious: Yes (Hospitalization, Other)
  Sender: FDA-Public Use
  Company Number: US-ELI_LILLY_AND_COMPANY-US201001001363

PATIENT
  Sex: Male

DRUGS (6)
  1. HUMALOG MIX 75/25 [Suspect]
     Indication: DIABETES MELLITUS
     Dosage: 40 U, 2/D
     Dates: start: 20070101
  2. HUMALOG MIX 75/25 [Suspect]
     Dosage: 40 U, 2/D
     Dates: start: 20070101
  3. HUMALOG MIX 75/25 [Suspect]
     Dosage: 45 U, 2/D
  4. HUMALOG MIX 75/25 [Suspect]
     Dosage: 45 U, 2/D
  5. HUMALOG MIX 75/25 [Suspect]
     Dosage: 40 U, 2/D
     Dates: start: 19950101
  6. METFORMIN HYDROCHLORIDE [Concomitant]
     Dosage: UNK, 3/D

REACTIONS (13)
  - ABDOMINAL DISCOMFORT [None]
  - CARDIAC DISORDER [None]
  - DIZZINESS [None]
  - DRUG DOSE OMISSION [None]
  - GLYCOSYLATED HAEMOGLOBIN INCREASED [None]
  - HYPERHIDROSIS [None]
  - INCORRECT PRODUCT STORAGE [None]
  - NAUSEA [None]
  - NERVOUS SYSTEM DISORDER [None]
  - SPINAL LAMINECTOMY [None]
  - VASCULAR GRAFT [None]
  - VOMITING [None]
  - WRONG TECHNIQUE IN DRUG USAGE PROCESS [None]
